FAERS Safety Report 21902109 (Version 1)
Quarter: 2023Q1

REPORT INFORMATION
  Report Type: Spontaneous
  Country: US (occurrence: US)
  Receive Date: 20230124
  Receipt Date: 20230124
  Transmission Date: 20230417
  Serious: No
  Sender: FDA-Public Use
  Company Number: US-JNJFOC-20230133931

PATIENT
  Age: 11 Year
  Sex: Female

DRUGS (2)
  1. DARZALEX [Interacting]
     Active Substance: DARATUMUMAB
     Indication: Heart transplant
     Route: 065
  2. EFGARTIGIMOD ALFA [Interacting]
     Active Substance: EFGARTIGIMOD ALFA
     Indication: Product used for unknown indication
     Route: 065

REACTIONS (2)
  - Off label use [Unknown]
  - Drug interaction [Unknown]
